FAERS Safety Report 7623317-6 (Version None)
Quarter: 2011Q3

REPORT INFORMATION
  Report Type: 
  Country: None (occurrence: None)
  Receive Date: 20110720
  Receipt Date: 20110705
  Transmission Date: 20111222
  Serious: Yes (Hospitalization)
  Sender: FDA-Public Use
  Company Number: US-SANOFI-AVENTIS-2011SA044376

PATIENT
  Age: 83 Year
  Sex: Female
  Weight: 90 kg

DRUGS (14)
  1. LACTULOSE [Concomitant]
  2. WARFARIN SODIUM [Concomitant]
     Dosage: 47.5MG WEEKLY
  3. VITAMIN D [Concomitant]
  4. DIGOXIN [Concomitant]
     Dates: end: 20110127
  5. IRBESARTAN [Concomitant]
  6. COLCHICINE [Concomitant]
     Dates: end: 20110120
  7. OXYCODONE HCL [Concomitant]
  8. FUROSEMIDE [Concomitant]
  9. DRONEDARONE HCL [Suspect]
     Indication: ATRIAL FIBRILLATION
     Route: 048
     Dates: start: 20110118, end: 20110202
  10. ALLOPURINOL [Concomitant]
  11. AMLODIPINE [Concomitant]
     Dates: end: 20110120
  12. GABAPENTIN [Concomitant]
  13. LOVAZA [Concomitant]
  14. GLIPIZIDE [Concomitant]

REACTIONS (1)
  - PULMONARY HYPERTENSION [None]
